FAERS Safety Report 12497962 (Version 2)
Quarter: 2016Q2

REPORT INFORMATION
  Report Type: Spontaneous
  Country: US (occurrence: US)
  Receive Date: 20160626
  Receipt Date: 20160627
  Transmission Date: 20160815
  Serious: No
  Sender: FDA-Public Use
  Company Number: US-TEVA-670315USA

PATIENT
  Age: 60 Year
  Sex: Female

DRUGS (18)
  1. JANUVIA [Concomitant]
     Active Substance: SITAGLIPTIN PHOSPHATE
     Dates: start: 20160415
  2. COPAXONE [Suspect]
     Active Substance: GLATIRAMER ACETATE
     Indication: MULTIPLE SCLEROSIS
     Route: 058
  3. DOXYCYCL HYC [Concomitant]
     Dates: start: 20091231
  4. VASCEPA [Concomitant]
     Active Substance: ICOSAPENT ETHYL
     Dates: start: 20160414
  5. VASCEPA [Concomitant]
     Active Substance: ICOSAPENT ETHYL
     Dates: start: 20160421
  6. METFORMIN [Concomitant]
     Active Substance: METFORMIN HYDROCHLORIDE
     Dates: start: 20150414
  7. METHYLPRED PAK [Concomitant]
     Dates: start: 20100914
  8. PENICILLIN VK [Concomitant]
     Active Substance: PENICILLIN V POTASSIUM
     Dates: start: 20160516
  9. AMANTADINE [Concomitant]
     Active Substance: AMANTADINE
     Dates: start: 20080922
  10. OXYBUTYNIN [Concomitant]
     Active Substance: OXYBUTYNIN
     Dates: start: 20100419
  11. METRONIDAZOL [Concomitant]
     Active Substance: METRONIDAZOLE
     Dates: start: 20090406
  12. DOXYCYCL HYC [Concomitant]
     Dates: start: 20150805
  13. JANUVIA [Concomitant]
     Active Substance: SITAGLIPTIN PHOSPHATE
     Dates: start: 20160421
  14. METFORMIN [Concomitant]
     Active Substance: METFORMIN HYDROCHLORIDE
     Dates: start: 20160421
  15. PENICILLIN VK [Concomitant]
     Active Substance: PENICILLIN V POTASSIUM
     Dates: start: 20160606
  16. DOXYCYCL HYC [Concomitant]
     Dates: start: 20160203
  17. METFORMIN [Concomitant]
     Active Substance: METFORMIN HYDROCHLORIDE
     Dates: start: 20160415
  18. DETROL LA [Concomitant]
     Active Substance: TOLTERODINE TARTRATE
     Dates: start: 20100316

REACTIONS (1)
  - Fall [Unknown]

NARRATIVE: CASE EVENT DATE: 201605
